FAERS Safety Report 8451572-1 (Version None)
Quarter: 2012Q2

REPORT INFORMATION
  Report Type: 
  Country: None (occurrence: None)
  Receive Date: 20120620
  Receipt Date: 20120403
  Transmission Date: 20120825
  Serious: No
  Sender: FDA-Public Use
  Company Number: US-VERTEX PHARMACEUTICALS INC.-AE-2012-003336

PATIENT
  Sex: Female
  Weight: 105.78 kg

DRUGS (7)
  1. CONCERTA [Concomitant]
     Indication: ATTENTION DEFICIT/HYPERACTIVITY DISORDER
     Route: 048
  2. INCIVEK [Suspect]
     Indication: HEPATITIS C
     Route: 048
     Dates: start: 20120224
  3. ZOLOFT [Concomitant]
     Indication: DEPRESSION
     Route: 048
  4. PEGASYS [Concomitant]
     Indication: HEPATITIS C
     Route: 058
     Dates: start: 20120224
  5. RIBAVIRIN [Concomitant]
     Indication: HEPATITIS C
     Route: 048
     Dates: start: 20120224
  6. TOPAMAX [Concomitant]
     Indication: MIGRAINE
     Route: 048
  7. HYDROCHLOROTHIAZIDE [Concomitant]
     Indication: FLUID RETENTION
     Route: 048

REACTIONS (14)
  - DRUG DOSE OMISSION [None]
  - WHITE BLOOD CELL COUNT DECREASED [None]
  - HAEMOGLOBIN DECREASED [None]
  - PLATELET COUNT DECREASED [None]
  - ANAL PRURITUS [None]
  - ACCIDENTAL OVERDOSE [None]
  - PAIN [None]
  - PYREXIA [None]
  - INSOMNIA [None]
  - RASH PAPULAR [None]
  - RASH MACULAR [None]
  - EYELID MARGIN CRUSTING [None]
  - VISUAL IMPAIRMENT [None]
  - PRURITUS GENERALISED [None]
